FAERS Safety Report 6339750-9 (Version None)
Quarter: 2009Q3

REPORT INFORMATION
  Report Type: 
  Country: None (occurrence: None)
  Receive Date: 20090903
  Receipt Date: 20090825
  Transmission Date: 20100115
  Serious: Yes (Other)
  Sender: FDA-Public Use
  Company Number: FR-ELI_LILLY_AND_COMPANY-FR200906002839

PATIENT
  Age: 56 Year
  Sex: Male

DRUGS (5)
  1. ZYPREXA [Suspect]
     Indication: BIPOLAR DISORDER
     Dosage: 15 MG, DAILY (1/D)
     Route: 048
     Dates: start: 20090101, end: 20090501
  2. ZYPREXA [Suspect]
     Dosage: UNK, UNKNOWN
     Route: 065
     Dates: start: 20090501
  3. RISPERDAL [Concomitant]
     Indication: BIPOLAR DISORDER
     Dosage: 2 D/F, DAILY (1/D)
     Route: 048
     Dates: start: 20090519, end: 20090526
  4. EFFEXOR [Concomitant]
     Indication: BIPOLAR DISORDER
     Dosage: 3 D/F, DAILY (1/D)
     Route: 048
     Dates: start: 20090317
  5. XANAX [Concomitant]
     Dosage: 3 D/F, DAILY (1/D)
     Route: 048
     Dates: start: 20090101

REACTIONS (3)
  - AMNESIA [None]
  - DRUG INTERACTION [None]
  - WEIGHT INCREASED [None]
